FAERS Safety Report 5919844-X (Version None)
Quarter: 2008Q4

REPORT INFORMATION
  Report Type: 
  Country: None (occurrence: None)
  Receive Date: 20081015
  Receipt Date: 20081006
  Transmission Date: 20090506
  Serious: Yes (Other)
  Sender: FDA-Public Use
  Company Number: FR-PFIZER INC-2008084480

PATIENT
  Age: 50 Year
  Sex: Male

DRUGS (2)
  1. GENOTONORM [Suspect]
     Indication: HYPOPITUITARISM
  2. PITUITARY AND HYPOTHALAMIC HORMONES [Concomitant]
     Indication: HYPOPITUITARISM

REACTIONS (1)
  - LYMPHOMA [None]
